FAERS Safety Report 8164309-0 (Version None)
Quarter: 2012Q1

REPORT INFORMATION
  Report Type: 
  Country: None (occurrence: None)
  Receive Date: 20120224
  Receipt Date: 20111017
  Transmission Date: 20120608
  Serious: No
  Sender: FDA-Public Use
  Company Number: US-MYLANLABS-2011S1018666

PATIENT
  Sex: Female

DRUGS (1)
  1. ATENOLOL [Suspect]
     Indication: VENTRICULAR EXTRASYSTOLES
     Dates: end: 20110915

REACTIONS (18)
  - LUPUS-LIKE SYNDROME [None]
  - EAR PAIN [None]
  - TACHYCARDIA [None]
  - FATIGUE [None]
  - ASTHENIA [None]
  - CONTUSION [None]
  - HEART RATE IRREGULAR [None]
  - CARDIAC FLUTTER [None]
  - DYSPNOEA [None]
  - PRURITUS [None]
  - NAUSEA [None]
  - BALANCE DISORDER [None]
  - CHEST PAIN [None]
  - ARRHYTHMIA [None]
  - TINNITUS [None]
  - COUGH [None]
  - DIZZINESS [None]
  - BRADYPHRENIA [None]
